FAERS Safety Report 15131493 (Version 1)
Quarter: 2018Q3

REPORT INFORMATION
  Report Type: Spontaneous
  Country: FR (occurrence: FR)
  Receive Date: 20180711
  Receipt Date: 20180711
  Transmission Date: 20181010
  Serious: Yes (Hospitalization)
  Sender: FDA-Public Use
  Company Number: FR-MYLANLABS-2018M1048840

PATIENT
  Age: 39 Year
  Sex: Female

DRUGS (3)
  1. TOPLEXIL /01513001/ [Suspect]
     Active Substance: GUAIFENESIN\OXOMEMAZINE
     Indication: BRONCHITIS
     Dosage: 10 ML, QD
     Route: 048
     Dates: start: 20180123, end: 20180129
  2. ZECLAR 500 MG, COMPRIM? PELLICUL? [Suspect]
     Active Substance: CLARITHROMYCIN
     Indication: BRONCHITIS
     Dosage: 2 DF, QD
     Route: 048
     Dates: start: 20180123, end: 20180129
  3. SOLUPRED                           /00016217/ [Suspect]
     Active Substance: PREDNISOLONE SODIUM METAZOATE
     Indication: BRONCHITIS
     Dosage: 2.5 DF, QD
     Route: 048
     Dates: start: 20180123, end: 20180129

REACTIONS (1)
  - Persecutory delusion [Recovered/Resolved]

NARRATIVE: CASE EVENT DATE: 20180129
